FAERS Safety Report 10362892 (Version 2)
Quarter: 2014Q3

REPORT INFORMATION
  Report Type: Spontaneous
  Country: US (occurrence: US)
  Receive Date: 20140805
  Receipt Date: 20140805
  Transmission Date: 20150326
  Serious: Yes (Hospitalization, Other)
  Sender: FDA-Public Use
  Company Number: US-009507513-2010SP005477

PATIENT
  Sex: Female
  Weight: 79.38 kg

DRUGS (1)
  1. NUVARING [Suspect]
     Active Substance: ETHINYL ESTRADIOL\ETONOGESTREL
     Indication: CONTRACEPTION
     Dates: start: 200801, end: 200804

REACTIONS (10)
  - Premature rupture of membranes [Recovered/Resolved]
  - Haemorrhage in pregnancy [Recovered/Resolved]
  - Premature separation of placenta [Recovered/Resolved]
  - Unintended pregnancy [Recovered/Resolved]
  - Vulvovaginal candidiasis [Unknown]
  - Thrombosis [Unknown]
  - Streptococcus test positive [Unknown]
  - Embolism venous [Unknown]
  - Headache [Unknown]
  - Deep vein thrombosis [Unknown]

NARRATIVE: CASE EVENT DATE: 2008
